FAERS Safety Report 8009365-5 (Version None)
Quarter: 2011Q4

REPORT INFORMATION
  Report Type: 
  Country: None (occurrence: None)
  Receive Date: 20111227
  Receipt Date: 20111216
  Transmission Date: 20120403
  Serious: Yes (Hospitalization)
  Sender: FDA-Public Use
  Company Number: US-ASTRAZENECA-2010SE26051

PATIENT
  Age: 53 Year
  Sex: Female
  Weight: 63.5 kg

DRUGS (8)
  1. SEROQUEL [Suspect]
     Indication: DEPRESSION
     Route: 048
     Dates: start: 20080101, end: 20100501
  2. NORCO [Concomitant]
  3. SEROQUEL [Suspect]
     Indication: BIPOLAR DISORDER
     Route: 048
     Dates: start: 20080101, end: 20100501
  4. SEROQUEL [Suspect]
     Dosage: 200-300 MG, AT NIGHT
     Route: 048
  5. WELLBUTRIN [Concomitant]
  6. DURAGESIC-100 [Concomitant]
  7. NEURONTIN [Concomitant]
  8. SEROQUEL [Suspect]
     Dosage: 200-300 MG, AT NIGHT
     Route: 048

REACTIONS (13)
  - EFFUSION [None]
  - NAUSEA [None]
  - INCORRECT DOSE ADMINISTERED [None]
  - ACCIDENT AT WORK [None]
  - INSOMNIA [None]
  - PALPITATIONS [None]
  - FEELING ABNORMAL [None]
  - DRUG DOSE OMISSION [None]
  - NECK PAIN [None]
  - MOOD SWINGS [None]
  - DRUG WITHDRAWAL SYNDROME [None]
  - DEPRESSION [None]
  - ANXIETY [None]
